FAERS Safety Report 8549123-6 (Version None)
Quarter: 2012Q3

REPORT INFORMATION
  Report Type: 
  Country: None (occurrence: None)
  Receive Date: 20120730
  Receipt Date: 20120726
  Transmission Date: 20120928
  Serious: No
  Sender: FDA-Public Use
  Company Number: US-PFIZER INC-2012154919

PATIENT
  Sex: Male
  Weight: 70.3 kg

DRUGS (1)
  1. FLECTOR [Suspect]
     Indication: BACK PAIN
     Dosage: UNK
     Dates: start: 20120626

REACTIONS (1)
  - DRUG INEFFECTIVE [None]
